FAERS Safety Report 12400196 (Version 1)
Quarter: 2016Q2

REPORT INFORMATION
  Report Type: Spontaneous
  Country: US (occurrence: None)
  Receive Date: 20160524
  Receipt Date: 20160524
  Transmission Date: 20160815
  Serious: Yes (Death, Hospitalization)
  Sender: FDA-Public Use
  Company Number: None

PATIENT
  Age: 74 Year
  Sex: Male
  Weight: 81.65 kg

DRUGS (1)
  1. VANCOMYCIN [Suspect]
     Active Substance: VANCOMYCIN
     Indication: POST PROCEDURAL INFECTION
     Dosage: INTO A VEIN
     Route: 042
     Dates: start: 20160317, end: 20160401

REACTIONS (5)
  - Stevens-Johnson syndrome [None]
  - Renal failure [None]
  - Headache [None]
  - Rash erythematous [None]
  - Malaise [None]

NARRATIVE: CASE EVENT DATE: 20160317
